FAERS Safety Report 10412758 (Version 1)
Quarter: 2014Q3

REPORT INFORMATION
  Report Type: Report from Study
  Country: LB (occurrence: LB)
  Receive Date: 20140827
  Receipt Date: 20140827
  Transmission Date: 20150326
  Serious: Yes (Other)
  Sender: FDA-Public Use
  Company Number: LB-SA-2014SA113399

PATIENT
  Age: 68 Year
  Sex: Male

DRUGS (7)
  1. SOLOSTAR [Concomitant]
     Active Substance: DEVICE
  2. CONCOR [Concomitant]
     Active Substance: BISOPROLOL FUMARATE
     Route: 048
  3. AMLOR [Concomitant]
     Active Substance: AMLODIPINE BESYLATE
     Route: 048
  4. TRITACE [Concomitant]
     Active Substance: RAMIPRIL
     Route: 048
  5. ASPICOT [Concomitant]
     Active Substance: ASPIRIN
     Route: 048
  6. GLUCOPHAGE [Concomitant]
     Active Substance: METFORMIN HYDROCHLORIDE
     Indication: DIABETES MELLITUS
     Route: 048
     Dates: start: 2014
  7. LANTUS SOLOSTAR [Suspect]
     Active Substance: INSULIN GLARGINE
     Indication: DIABETES MELLITUS
     Dosage: DOSE:30 UNIT(S)
     Route: 058
     Dates: start: 201401, end: 201407

REACTIONS (2)
  - Vascular graft [Unknown]
  - Stent placement [Unknown]

NARRATIVE: CASE EVENT DATE: 201407
